FAERS Safety Report 5862051-X (Version None)
Quarter: 2008Q3

REPORT INFORMATION
  Report Type: 
  Country: None (occurrence: None)
  Receive Date: 20080827
  Receipt Date: 20080827
  Transmission Date: 20090109
  Serious: Yes (Hospitalization, Other)
  Sender: FDA-Public Use
  Company Number: None

PATIENT
  Age: 36 Year
  Sex: Female
  Weight: 63.5036 kg

DRUGS (2)
  1. YASMIN [Suspect]
     Indication: DYSMENORRHOEA
     Dosage: ONE PER DAY DAILY
     Dates: start: 20050301, end: 20050901
  2. YASMIN [Suspect]
     Indication: MENORRHAGIA
     Dosage: ONE PER DAY DAILY
     Dates: start: 20050301, end: 20050901

REACTIONS (30)
  - ABDOMINAL DISCOMFORT [None]
  - ABORTION SPONTANEOUS [None]
  - ADNEXA UTERI PAIN [None]
  - BACK PAIN [None]
  - BLOOD MAGNESIUM DECREASED [None]
  - BODY TEMPERATURE DECREASED [None]
  - CHEST PAIN [None]
  - CONFUSIONAL STATE [None]
  - FATIGUE [None]
  - FLUID RETENTION [None]
  - GASTRIC DISORDER [None]
  - HEADACHE [None]
  - HYPOAESTHESIA [None]
  - HYPOTENSION [None]
  - MALAISE [None]
  - MENSTRUAL DISORDER [None]
  - MENTAL DISORDER [None]
  - MOOD ALTERED [None]
  - NIGHT SWEATS [None]
  - OVARIAN CYST [None]
  - PAIN [None]
  - PAIN IN EXTREMITY [None]
  - PALPITATIONS [None]
  - PROTEIN C DECREASED [None]
  - SWELLING [None]
  - TINNITUS [None]
  - TREMOR [None]
  - UTERINE POLYP [None]
  - VITAMIN B12 DEFICIENCY [None]
  - VITAMIN D DECREASED [None]
